FAERS Safety Report 5523510-2 (Version None)
Quarter: 2007Q4

REPORT INFORMATION
  Report Type: 
  Country: None (occurrence: None)
  Receive Date: 20071121
  Receipt Date: 20071114
  Transmission Date: 20080405
  Serious: Yes (Other)
  Sender: FDA-Public Use
  Company Number: US-JNJFOC-20071105739

PATIENT
  Sex: Female
  Weight: 68.04 kg

DRUGS (2)
  1. IBUPROFEN [Suspect]
     Indication: INFLAMMATION
  2. SUGAR PILLS [Concomitant]

REACTIONS (3)
  - MALAISE [None]
  - PYREXIA [None]
  - RENAL DISORDER [None]
